FAERS Safety Report 23664512 (Version 1)
Quarter: 2024Q1

REPORT INFORMATION
  Report Type: Spontaneous
  Country: US (occurrence: US)
  Receive Date: 20240322
  Receipt Date: 20240322
  Transmission Date: 20240410
  Serious: No
  Sender: FDA-Public Use
  Company Number: US-ASCENDIS PHARMA-2023US003720

PATIENT

DRUGS (3)
  1. SKYTROFA [Suspect]
     Active Substance: LONAPEGSOMATROPIN-TCGD
     Indication: Hypopituitarism
     Dosage: 5.2 MG, ONCE A WEEK
     Route: 058
     Dates: start: 20230824
  2. NORDITROPIN [Concomitant]
     Active Substance: SOMATROPIN
     Indication: Product used for unknown indication
     Dosage: 5 MILLIGRAM PER 1.5 MILLILITRE
  3. NUTROPIN AQ [Concomitant]
     Active Substance: SOMATROPIN
     Indication: Product used for unknown indication
     Dosage: 20 MG/2ML

REACTIONS (2)
  - Treatment noncompliance [Unknown]
  - Weight increased [Unknown]
